FAERS Safety Report 6616826-X (Version None)
Quarter: 2010Q1

REPORT INFORMATION
  Report Type: 
  Country: None (occurrence: None)
  Receive Date: 20100301
  Receipt Date: 20100219
  Transmission Date: 20100710
  Serious: Yes (Other)
  Sender: FDA-Public Use
  Company Number: DSA_42658_2010

PATIENT
  Sex: Female

DRUGS (2)
  1. XENAZINE [Suspect]
     Indication: DRUG USE FOR UNKNOWN INDICATION
     Dosage: (25 MG BID ORAL) ; (25 MG TID ORAL)
     Route: 048
     Dates: start: 20091117, end: 20100101
  2. XENAZINE [Suspect]
     Indication: DRUG USE FOR UNKNOWN INDICATION
     Dosage: (25 MG BID ORAL) ; (25 MG TID ORAL)
     Route: 048
     Dates: start: 20100201

REACTIONS (3)
  - DRUG INEFFECTIVE [None]
  - IMMOBILE [None]
  - PARKINSONISM [None]
